FAERS Safety Report 6172709-3 (Version None)
Quarter: 2009Q2

REPORT INFORMATION
  Report Type: 
  Country: None (occurrence: None)
  Receive Date: 20090430
  Receipt Date: 20090421
  Transmission Date: 20091009
  Serious: Yes (Death, Hospitalization)
  Sender: FDA-Public Use
  Company Number: US-BIOGENIDEC-2009BI005066

PATIENT
  Age: 46 Year
  Sex: Female

DRUGS (2)
  1. AVONEX [Suspect]
     Indication: MULTIPLE SCLEROSIS
     Route: 030
     Dates: start: 20030901, end: 20090115
  2. AVONEX [Suspect]
     Route: 030
     Dates: start: 19960101, end: 20030901

REACTIONS (2)
  - CYSTITIS [None]
  - MULTI-ORGAN FAILURE [None]
